FAERS Safety Report 6996996-4 (Version None)
Quarter: 2010Q3

REPORT INFORMATION
  Report Type: 
  Country: None (occurrence: None)
  Receive Date: 20100918
  Receipt Date: 20090921
  Transmission Date: 20110219
  Serious: No
  Sender: FDA-Public Use
  Company Number: US-WYE-H10694909

PATIENT
  Age: 60 Year
  Sex: Female
  Weight: 62.65 kg

DRUGS (2)
  1. PRISTIQ [Suspect]
     Indication: DEPRESSION
     Route: 048
     Dates: start: 20090701, end: 20090914
  2. SACCHAROMYCES BOULARDII [Concomitant]

REACTIONS (2)
  - DIARRHOEA [None]
  - FEELING HOT [None]
